FAERS Safety Report 13865853 (Version 1)
Quarter: 2017Q3

REPORT INFORMATION
  Report Type: Spontaneous
  Country: BR (occurrence: BR)
  Receive Date: 20170814
  Receipt Date: 20170814
  Transmission Date: 20171127
  Serious: Yes (Other)
  Sender: FDA-Public Use
  Company Number: PHHY2017BR117853

PATIENT
  Sex: Male
  Weight: 103 kg

DRUGS (2)
  1. DIOVAN [Suspect]
     Active Substance: VALSARTAN
     Dosage: 1 DF, QD (CONCENTRATION 320 MG)
     Route: 048
  2. DIOVAN [Suspect]
     Active Substance: VALSARTAN
     Indication: HYPERTENSION
     Dosage: 1 DF, QD (IN THE MORNING AFTER BREAKFAST, CONCENTRATION 80 MG)
     Route: 048

REACTIONS (3)
  - Blood pressure fluctuation [Not Recovered/Not Resolved]
  - Blood pressure increased [Not Recovered/Not Resolved]
  - Deafness [Not Recovered/Not Resolved]
